FAERS Safety Report 10789153 (Version 2)
Quarter: 2015Q1

REPORT INFORMATION
  Report Type: Other
  Country: IT (occurrence: IT)
  Receive Date: 20150212
  Receipt Date: 20150220
  Transmission Date: 20150721
  Serious: Yes (Hospitalization)
  Sender: FDA-Public Use
  Company Number: IT-MYLANLABS-2015M1003724

PATIENT

DRUGS (2)
  1. IBUPROFEN LYSINE [Suspect]
     Active Substance: IBUPROFEN LYSINE
     Indication: PHARYNGITIS
     Dosage: 1200 MG DAILY
     Route: 048
     Dates: start: 20150103, end: 20150110
  2. AMOXICILLIN,CLAVULANIC ACID [Suspect]
     Active Substance: AMOXICILLIN\CLAVULANIC ACID
     Indication: PHARYNGITIS
     Dosage: 2 G DAILY
     Route: 048
     Dates: start: 20150103, end: 20150110

REACTIONS (2)
  - Myalgia [Unknown]
  - Cholestasis [Unknown]

NARRATIVE: CASE EVENT DATE: 20150110
